FAERS Safety Report 9064802 (Version 3)
Quarter: 2013Q2

REPORT INFORMATION
  Report Type: Report from Study
  Country: US (occurrence: US)
  Receive Date: 20130213
  Receipt Date: 20130617
  Transmission Date: 20140414
  Serious: Yes (Hospitalization, Other)
  Sender: FDA-Public Use
  Company Number: US-NAPPMUNDI-USA-2013-0098690

PATIENT
  Age: 27 Year
  Sex: Female
  Weight: 61.22 kg

DRUGS (5)
  1. OXYCONTIN (NDA 22-272) [Suspect]
     Indication: PAIN
     Dosage: 160 MG, Q12H
     Route: 048
     Dates: start: 2009
  2. ROXICODONE [Concomitant]
     Indication: BREAKTHROUGH PAIN
     Dosage: 15 MG, UNK
     Route: 048
     Dates: start: 2009
  3. GABAPENTIN [Concomitant]
     Indication: NEURALGIA
     Dosage: 400 MG, UNK
     Dates: start: 2009
  4. NEXIUM                             /01479302/ [Concomitant]
  5. ATENOLOL [Concomitant]

REACTIONS (3)
  - Localised infection [Recovered/Resolved]
  - Complex regional pain syndrome [Recovered/Resolved]
  - Osteomyelitis [Unknown]
